FAERS Safety Report 23845442 (Version 5)
Quarter: 2025Q1

REPORT INFORMATION
  Report Type: Other
  Country: US (occurrence: US)
  Receive Date: 20240511
  Receipt Date: 20250121
  Transmission Date: 20250408
  Serious: Yes (Other)
  Sender: TRAVERE THERAPEUTICS
  Company Number: US-TRAVERE-2024TVT00395

PATIENT
  Age: 40 Year
  Sex: Female

DRUGS (4)
  1. FILSPARI [Suspect]
     Active Substance: SPARSENTAN
     Indication: IgA nephropathy
     Dosage: 400MG EVERY OTHER DAY
     Route: 048
     Dates: start: 20240417
  2. FILSPARI [Suspect]
     Active Substance: SPARSENTAN
     Route: 048
  3. ROSUVASTATIN [Concomitant]
     Active Substance: ROSUVASTATIN
  4. LEVOTHYROXINE [Concomitant]
     Active Substance: LEVOTHYROXINE

REACTIONS (18)
  - Blood pressure increased [Recovering/Resolving]
  - Neck pain [Unknown]
  - Urethral pain [Unknown]
  - Myalgia [Unknown]
  - Dizziness [None]
  - Head discomfort [Unknown]
  - Generalised oedema [None]
  - Fatigue [Unknown]
  - Weight increased [None]
  - Nausea [Unknown]
  - Vomiting [Unknown]
  - Decreased appetite [Unknown]
  - Fluid retention [Unknown]
  - Inappropriate schedule of product administration [Unknown]
  - Migraine [Unknown]
  - Hyperacusis [Unknown]
  - Photophobia [Unknown]
  - Nasopharyngitis [Unknown]

NARRATIVE: CASE EVENT DATE: 20240421
